FAERS Safety Report 21554269 (Version 3)
Quarter: 2022Q4

REPORT INFORMATION
  Report Type: Other
  Country: CN (occurrence: CN)
  Receive Date: 20221104
  Receipt Date: 20221114
  Transmission Date: 20230113
  Serious: Yes (Other)
  Sender: FDA-Public Use
  Company Number: CN-BoehringerIngelheim-2022-BI-199861

PATIENT

DRUGS (6)
  1. ALTEPLASE [Suspect]
     Active Substance: ALTEPLASE
     Indication: Cerebral infarction
     Dosage: INTRAVENOUS INJECTION OF 10% WITHIN 1 MIN, CONTINUOUS PUMPING OF ALTEPLASE 0.9 MG/KG USING A TWO-CHA
     Route: 042
  2. ALTEPLASE [Suspect]
     Active Substance: ALTEPLASE
     Dosage: PUMPING OF THE REMAINING 90% WITHIN 1 H.
     Route: 042
  3. OZAGREL [Concomitant]
     Active Substance: OZAGREL
     Indication: Cerebral infarction
     Dosage: ADDED TO 0.9% SODIUM CHLORIDE INJECTION 500 ML
     Route: 042
  4. CLOPIDOGREL [Concomitant]
     Active Substance: CLOPIDOGREL BISULFATE
     Indication: Product used for unknown indication
     Dosage: ONCE DAILY
     Route: 048
  5. ASPIRIN [Concomitant]
     Active Substance: ASPIRIN
     Indication: Product used for unknown indication
     Route: 048
  6. ROSUVASTATIN [Concomitant]
     Active Substance: ROSUVASTATIN
     Indication: Product used for unknown indication
     Dosage: ONCE DAILY
     Route: 048

REACTIONS (2)
  - Upper gastrointestinal haemorrhage [Unknown]
  - Off label use [Unknown]
